FAERS Safety Report 6901933-4 (Version None)
Quarter: 2010Q3

REPORT INFORMATION
  Report Type: 
  Country: None (occurrence: None)
  Receive Date: 20100803
  Receipt Date: 20080404
  Transmission Date: 20110219
  Serious: No
  Sender: FDA-Public Use
  Company Number: US-PFIZER INC-2008030130

PATIENT
  Sex: Female
  Weight: 95.3 kg

DRUGS (6)
  1. LYRICA [Suspect]
     Indication: FIBROMYALGIA
     Dates: start: 20070801, end: 20080327
  2. ALL OTHER THERAPEUTIC PRODUCTS [Concomitant]
  3. DIOVANE [Concomitant]
  4. COREG [Concomitant]
  5. NEXIUM [Concomitant]
  6. LIPITOR [Concomitant]

REACTIONS (5)
  - BLOOD CREATINE ABNORMAL [None]
  - HYPOPHAGIA [None]
  - MALAISE [None]
  - NAUSEA [None]
  - TREMOR [None]
